FAERS Safety Report 15853938 (Version 1)
Quarter: 2019Q1

REPORT INFORMATION
  Report Type: Spontaneous
  Country: US (occurrence: US)
  Receive Date: 20190121
  Receipt Date: 20190121
  Transmission Date: 20190417
  Serious: Yes (Other)
  Sender: FDA-Public Use
  Company Number: None

PATIENT
  Age: 50 Year
  Sex: Male
  Weight: 95 kg

DRUGS (4)
  1. MEKTOVI [Suspect]
     Active Substance: BINIMETINIB
     Indication: COLON CANCER
     Route: 048
     Dates: start: 20181227
  2. TRAMADOL. [Concomitant]
     Active Substance: TRAMADOL
  3. ENALAPRIL [Concomitant]
     Active Substance: ENALAPRIL
  4. BRAFTOVI [Suspect]
     Active Substance: ENCORAFENIB
     Indication: COLON CANCER
     Route: 048
     Dates: start: 20181228

REACTIONS (2)
  - Pyrexia [None]
  - Headache [None]

NARRATIVE: CASE EVENT DATE: 20190120
